FAERS Safety Report 7596099-4 (Version None)
Quarter: 2011Q3

REPORT INFORMATION
  Report Type: 
  Country: None (occurrence: None)
  Receive Date: 20110707
  Receipt Date: 20110622
  Transmission Date: 20111222
  Serious: Yes (Hospitalization)
  Sender: FDA-Public Use
  Company Number: ES-WATSON-2011-09536

PATIENT
  Age: 72 Year
  Sex: Female

DRUGS (3)
  1. METFORMIN HCL [Suspect]
     Indication: TYPE 2 DIABETES MELLITUS
     Dosage: 850 MG, BID
     Route: 048
  2. DICLOFENAC SODIUM [Suspect]
     Indication: PAIN
     Dosage: UNK
     Route: 048
  3. ENALAPRIL MALEATE [Suspect]
     Indication: CARDIOMYOPATHY
     Dosage: 5 MG, DAILY
     Route: 048

REACTIONS (2)
  - RENAL FAILURE ACUTE [None]
  - LACTIC ACIDOSIS [None]
